FAERS Safety Report 16275523 (Version 2)
Quarter: 2019Q4

REPORT INFORMATION
  Report Type: Report from Study
  Country: CA (occurrence: CA)
  Receive Date: 20190506
  Receipt Date: 20191128
  Transmission Date: 20200122
  Serious: Yes (Other)
  Sender: FDA-Public Use
  Company Number: CA-ROCHE-2220802

PATIENT
  Age: 55 Year
  Sex: Female

DRUGS (5)
  1. PRIMROSE OIL [Concomitant]
     Dosage: ONGOING-YES
     Route: 065
  2. TIZANIDINE. [Concomitant]
     Active Substance: TIZANIDINE
     Indication: MUSCLE SPASMS
     Route: 065
     Dates: start: 2019
  3. VITAMIN B COMPLEX [Concomitant]
     Active Substance: CYANOCOBALAMIN\DEXPANTHENOL\NIACINAMIDE\PYRIDOXINE HYDROCHLORIDE\RIBOFLAVIN 5^-PHOSPHATE SODIUM\THIAMINE HYDROCHLORIDE\VITAMIN B COMPLEX
     Dosage: ONGOING-YES
     Route: 065
  4. OMEGA 3-6-9 [FISH OIL] [Concomitant]
     Dosage: ONGOING-YES
     Route: 065
  5. OCREVUS [Suspect]
     Active Substance: OCRELIZUMAB
     Indication: RELAPSING-REMITTING MULTIPLE SCLEROSIS
     Dosage: 300 MG AT DAY 0 AND 14, THEN 600 MG EVERY 6 MONTH
     Route: 042
     Dates: start: 20180514

REACTIONS (11)
  - Muscle spasms [Not Recovered/Not Resolved]
  - Psoriasis [Recovered/Resolved]
  - Pruritus [Recovered/Resolved]
  - Paraesthesia [Unknown]
  - Musculoskeletal disorder [Not Recovered/Not Resolved]
  - Cystitis [Unknown]
  - Fatigue [Unknown]
  - Pruritus [Recovered/Resolved]
  - Stress [Not Recovered/Not Resolved]
  - Walking aid user [Unknown]
  - Bedridden [Unknown]

NARRATIVE: CASE EVENT DATE: 2019
